FAERS Safety Report 19314480 (Version 1)
Quarter: 2021Q2

REPORT INFORMATION
  Report Type: Spontaneous
  Country: US (occurrence: US)
  Receive Date: 20210527
  Receipt Date: 20210527
  Transmission Date: 20210717
  Serious: No
  Sender: FDA-Public Use
  Company Number: US-BAYER-2021-147923

PATIENT
  Age: 43 Year
  Sex: Female

DRUGS (1)
  1. MIRENA [Suspect]
     Active Substance: LEVONORGESTREL
     Indication: CONTRACEPTION
     Dosage: 20 ?G PER DAY CONTINUOSLY
     Route: 015
     Dates: start: 20210518, end: 20210518

REACTIONS (2)
  - Complication of device insertion [None]
  - Post procedural discomfort [None]

NARRATIVE: CASE EVENT DATE: 20210518
